FAERS Safety Report 15654195 (Version 1)
Quarter: 2018Q4

REPORT INFORMATION
  Report Type: Report from Study
  Country: None (occurrence: TW)
  Receive Date: 20181125
  Receipt Date: 20181125
  Transmission Date: 20190205
  Serious: Yes (Death, Hospitalization)
  Sender: FDA-Public Use
  Company Number: TW-ABBVIE-18K-153-2547762-00

PATIENT
  Age: 61 Year
  Sex: Female
  Weight: 36 kg

DRUGS (1)
  1. HUMIRA [Suspect]
     Active Substance: ADALIMUMAB
     Indication: CROHN^S DISEASE
     Route: 058
     Dates: start: 20181009, end: 20181023

REACTIONS (6)
  - Pneumonia [Unknown]
  - Pleural effusion [Unknown]
  - Mycoplasma infection [Fatal]
  - Septic shock [Unknown]
  - Cytomegalovirus infection [Unknown]
  - Acute respiratory failure [Unknown]

NARRATIVE: CASE EVENT DATE: 2018
